FAERS Safety Report 6864353-7 (Version None)
Quarter: 2010Q3

REPORT INFORMATION
  Report Type: 
  Country: None (occurrence: None)
  Receive Date: 20100721
  Receipt Date: 20081015
  Transmission Date: 20110219
  Serious: Yes (Hospitalization, Other)
  Sender: FDA-Public Use
  Company Number: US-PFIZER INC-2008022995

PATIENT
  Sex: Female
  Weight: 102.5 kg

DRUGS (14)
  1. CHANTIX [Suspect]
     Indication: SMOKING CESSATION THERAPY
     Route: 048
     Dates: start: 20080201
  2. DYAZIDE [Concomitant]
  3. MONTELUKAST SODIUM [Concomitant]
     Indication: ASTHMA
  4. ZOLOFT [Concomitant]
     Indication: DEPRESSION
  5. TRANXENE [Concomitant]
     Indication: PANIC ATTACK
  6. TRANXENE [Concomitant]
     Indication: NERVOUSNESS
  7. DICYCLOMINE [Concomitant]
  8. VITAMIN D [Concomitant]
     Indication: VITAMIN D DEFICIENCY
     Dosage: 2 EVERY 1 WEEKS
  9. POTASSIUM CHLORIDE [Concomitant]
     Indication: BLOOD POTASSIUM DECREASED
  10. OTHER RESPIRATORY SYSTEM PRODUCTS [Concomitant]
  11. HOMEOPATHIC PREPARATION [Concomitant]
  12. HERBAL PREPARATION [Concomitant]
     Indication: COUGH
  13. TRIAMTERENE [Concomitant]
  14. ANTI-ASTHMATICS [Concomitant]

REACTIONS (17)
  - ANGER [None]
  - ANKLE FRACTURE [None]
  - DECREASED APPETITE [None]
  - DEPRESSION [None]
  - DIZZINESS [None]
  - DRUG DISPENSING ERROR [None]
  - FEAR [None]
  - HYPOAESTHESIA [None]
  - INAPPROPRIATE SCHEDULE OF DRUG ADMINISTRATION [None]
  - INFLUENZA [None]
  - IRRITABILITY [None]
  - NAUSEA [None]
  - NERVE INJURY [None]
  - STRESS [None]
  - TOBACCO USER [None]
  - WEIGHT DECREASED [None]
  - WEIGHT INCREASED [None]
